FAERS Safety Report 5595524-8 (Version None)
Quarter: 2008Q1

REPORT INFORMATION
  Report Type: 
  Country: None (occurrence: None)
  Receive Date: 20080118
  Receipt Date: 20080102
  Transmission Date: 20080703
  Serious: Yes (Hospitalization, Other)
  Sender: FDA-Public Use
  Company Number: CA-JNJFOC-20080104404

PATIENT
  Sex: Female

DRUGS (9)
  1. TRIDURAL [Suspect]
     Indication: DRUG USE FOR UNKNOWN INDICATION
     Route: 048
  2. HALOPERIDOL [Suspect]
     Indication: DELIRIUM
     Route: 065
  3. AMOXICILLIN [Concomitant]
     Route: 065
  4. DILAUDID [Concomitant]
     Route: 065
  5. INDERAL [Concomitant]
     Route: 065
  6. KEMADRIN [Concomitant]
     Route: 065
  7. MODECATE [Concomitant]
     Route: 065
  8. SERAX [Concomitant]
     Route: 065
  9. TYLENOL [Concomitant]
     Route: 065

REACTIONS (5)
  - AKATHISIA [None]
  - DELIRIUM [None]
  - MUSCLE SPASMS [None]
  - PALPITATIONS [None]
  - RASH [None]
